FAERS Safety Report 13746517 (Version 1)
Quarter: 2017Q3

REPORT INFORMATION
  Report Type: Spontaneous
  Country: US (occurrence: US)
  Receive Date: 20170712
  Receipt Date: 20170712
  Transmission Date: 20171127
  Serious: Yes (Other)
  Sender: FDA-Public Use
  Company Number: US-MYLANLABS-2017M1042056

PATIENT

DRUGS (4)
  1. PREDNISONE TABLETS USP [Suspect]
     Active Substance: PREDNISONE
     Dosage: 10 MG, FOR 5 DAYS
  2. PREDNISONE TABLETS USP [Suspect]
     Active Substance: PREDNISONE
     Dosage: 30 MG, FOR 5 DAYS
  3. PREDNISONE TABLETS USP [Suspect]
     Active Substance: PREDNISONE
     Dosage: 20 MG, FOR 5 DAYS
  4. PREDNISONE TABLETS USP [Suspect]
     Active Substance: PREDNISONE
     Indication: COLITIS ULCERATIVE
     Dosage: 40 MG, FOR 5 DAYS

REACTIONS (1)
  - Cellulitis [Unknown]
